FAERS Safety Report 24227997 (Version 1)
Quarter: 2024Q3

REPORT INFORMATION
  Report Type: Spontaneous
  Country: FR (occurrence: FR)
  Receive Date: 20240820
  Receipt Date: 20240820
  Transmission Date: 20241016
  Serious: Yes (Hospitalization)
  Sender: SANDOZ
  Company Number: None

PATIENT
  Age: 81 Year
  Sex: Female
  Weight: 49 kg

DRUGS (7)
  1. BROMAZEPAM [Suspect]
     Active Substance: BROMAZEPAM
     Indication: Poisoning deliberate
     Dosage: 6 MG (1 DOSAGE FORM, ? PER DAY)
     Route: 048
     Dates: start: 20240717
  2. BROMAZEPAM [Suspect]
     Active Substance: BROMAZEPAM
     Indication: Anxiety
  3. ZOLPIDEM [Suspect]
     Active Substance: ZOLPIDEM TARTRATE
     Indication: Insomnia
     Dosage: 2 DOSAGE FORM
     Route: 048
     Dates: start: 20240717
  4. ZOLPIDEM [Suspect]
     Active Substance: ZOLPIDEM TARTRATE
     Indication: Poisoning deliberate
  5. FLUMAZENIL [Concomitant]
     Active Substance: FLUMAZENIL
     Indication: Product used for unknown indication
     Dosage: UNK
     Route: 065
  6. LERCANIDIPINE [Concomitant]
     Active Substance: LERCANIDIPINE
     Indication: Product used for unknown indication
     Dosage: X IN 1 DAY
     Route: 065
  7. LOVENOX [Concomitant]
     Active Substance: ENOXAPARIN SODIUM
     Indication: Product used for unknown indication
     Dosage: UNK
     Route: 065
     Dates: end: 20240722

REACTIONS (3)
  - Suicidal ideation [Unknown]
  - Toxicity to various agents [Recovered/Resolved]
  - Intentional overdose [Recovered/Resolved]

NARRATIVE: CASE EVENT DATE: 20240717
